FAERS Safety Report 24580511 (Version 1)
Quarter: 2024Q4

REPORT INFORMATION
  Report Type: Report from Study
  Country: CA (occurrence: CA)
  Receive Date: 20241105
  Receipt Date: 20241105
  Transmission Date: 20250115
  Serious: Yes (Other)
  Sender: REGENERON
  Company Number: CA-BAYER-2024A156226

PATIENT
  Sex: Female

DRUGS (1)
  1. EYLEA [Suspect]
     Active Substance: AFLIBERCEPT
     Indication: Age-related macular degeneration
     Dosage: EYLEA 40MG PER ML VIAL, 40 MG/ML
     Dates: start: 20241028

REACTIONS (4)
  - Cataract operation [Unknown]
  - Hip fracture [Unknown]
  - Eye haemorrhage [Unknown]
  - Fall [Unknown]
